FAERS Safety Report 7367263-4 (Version None)
Quarter: 2011Q1

REPORT INFORMATION
  Report Type: 
  Country: None (occurrence: None)
  Receive Date: 20110322
  Receipt Date: 20110311
  Transmission Date: 20110831
  Serious: Yes (Hospitalization, Other)
  Sender: FDA-Public Use
  Company Number: US-PFIZER INC-2006061395

PATIENT
  Sex: Male

DRUGS (3)
  1. NEURONTIN [Suspect]
     Dosage: 800 MG, UNK
     Dates: start: 20020723
  2. NEURONTIN [Suspect]
     Dosage: 800 MG, 3X/DAY
     Dates: start: 20020729
  3. NEURONTIN [Suspect]
     Dosage: 600 MG, UNK
     Dates: start: 20020802

REACTIONS (2)
  - SUICIDE ATTEMPT [None]
  - INTENTIONAL OVERDOSE [None]
